FAERS Safety Report 9378566 (Version 1)
Quarter: 2013Q3

REPORT INFORMATION
  Report Type: Other
  Country: DE (occurrence: DE)
  Receive Date: 20130702
  Receipt Date: 20130702
  Transmission Date: 20140515
  Serious: Yes (Other)
  Sender: FDA-Public Use
  Company Number: DE-LUPIN PHARMACEUTICALS INC.-E2B_00000986

PATIENT
  Sex: Female

DRUGS (1)
  1. LAMOTRIGINE (LAMOTRIGIN) [Suspect]
     Indication: EPILEPSY
     Route: 063

REACTIONS (6)
  - Failure to thrive [Recovered/Resolved]
  - Somnolence [Recovered/Resolved]
  - Exposure during breast feeding [None]
  - Maternal drugs affecting foetus [None]
  - Poor weight gain neonatal [None]
  - Feeding disorder neonatal [None]
